FAERS Safety Report 24641526 (Version 5)
Quarter: 2024Q4

REPORT INFORMATION
  Report Type: Report from Study
  Country: FR (occurrence: FR)
  Receive Date: 20241120
  Receipt Date: 20241210
  Transmission Date: 20250115
  Serious: Yes (Other)
  Sender: KYOWA
  Company Number: FR-KYOWAKIRIN-2024KK026072

PATIENT

DRUGS (8)
  1. MOGAMULIZUMAB [Suspect]
     Active Substance: MOGAMULIZUMAB
     Indication: Cutaneous T-cell lymphoma
     Dosage: 80 MG (60 MINUTES INFUSION) (TEMPORARY TREATMENT INTERRUPTION WAS REPORTED DUE TO AN ADVERSE EVENT)
     Route: 042
     Dates: start: 20240712, end: 20240712
  2. MOGAMULIZUMAB [Suspect]
     Active Substance: MOGAMULIZUMAB
     Dosage: 80 MG (60 MINUTES INFUSION)
     Route: 042
     Dates: start: 20240726, end: 20240726
  3. MOGAMULIZUMAB [Suspect]
     Active Substance: MOGAMULIZUMAB
     Dosage: 80 MG (60 MINUTES INFUSION)
     Route: 042
     Dates: start: 20240802, end: 20240802
  4. MOGAMULIZUMAB [Suspect]
     Active Substance: MOGAMULIZUMAB
     Dosage: 80 MG (60 MINUTES INFUSION)
     Route: 042
     Dates: start: 20240809, end: 20240809
  5. MOGAMULIZUMAB [Suspect]
     Active Substance: MOGAMULIZUMAB
     Dosage: 80 MG (60 MINUTES INFUSION)
     Route: 042
     Dates: start: 20240816, end: 20240816
  6. MOGAMULIZUMAB [Suspect]
     Active Substance: MOGAMULIZUMAB
     Dosage: 80 MG (60 MINUTES INFUSION) (TEMPORARY TREATMENT INTERRUPTION DUE TO AN ADVERSE EVENT)
     Route: 042
     Dates: start: 20240830, end: 20240830
  7. MOGAMULIZUMAB [Suspect]
     Active Substance: MOGAMULIZUMAB
     Dosage: 80 MG (60 MINUTES INFUSION)
     Route: 042
     Dates: start: 20240927, end: 20240927
  8. MOGAMULIZUMAB [Suspect]
     Active Substance: MOGAMULIZUMAB
     Dosage: 80 MG (60 MINUTES INFUSION) (TREATMENT PERMANENTLY DISCONTINUATION DUE TO AN ADVERSE EVENT)
     Route: 042
     Dates: start: 20241011, end: 20241011

REACTIONS (3)
  - Cell death [Recovering/Resolving]
  - Thrombocytopenia [Recovering/Resolving]
  - Drug eruption [Recovering/Resolving]

NARRATIVE: CASE EVENT DATE: 20240719
